FAERS Safety Report 6405685-6 (Version None)
Quarter: 2009Q4

REPORT INFORMATION
  Report Type: 
  Country: None (occurrence: None)
  Receive Date: 20091019
  Receipt Date: 20091012
  Transmission Date: 20100525
  Serious: Yes (Hospitalization)
  Sender: FDA-Public Use
  Company Number: D0063199A

PATIENT
  Age: 52 Year
  Sex: Male

DRUGS (2)
  1. DARAPRIM [Suspect]
     Indication: MALARIA PROPHYLAXIS
     Route: 048
     Dates: start: 20090601, end: 20090701
  2. METFORMIN HYDROCHLORIDE [Concomitant]
     Dosage: 1000MG PER DAY
     Route: 048
     Dates: start: 20070101, end: 20090701

REACTIONS (4)
  - ANAEMIA MEGALOBLASTIC [None]
  - HAEMOLYSIS [None]
  - HEPATOTOXICITY [None]
  - OFF LABEL USE [None]
